FAERS Safety Report 5482666-0 (Version None)
Quarter: 2007Q4

REPORT INFORMATION
  Report Type: 
  Country: None (occurrence: None)
  Receive Date: 20071011
  Receipt Date: 20070928
  Transmission Date: 20080405
  Serious: Yes (Other)
  Sender: FDA-Public Use
  Company Number: US-ELI_LILLY_AND_COMPANY-US200710000141

PATIENT
  Sex: Female

DRUGS (2)
  1. GEMZAR [Suspect]
     Indication: PANCREATIC CARCINOMA
  2. XELODA [Concomitant]
     Indication: PANCREATIC CARCINOMA

REACTIONS (1)
  - THROMBOCYTHAEMIA [None]
